FAERS Safety Report 15232059 (Version 1)
Quarter: 2018Q3

REPORT INFORMATION
  Report Type: Spontaneous
  Country: US (occurrence: US)
  Receive Date: 20180708
  Receipt Date: 20180708
  Transmission Date: 20181010
  Serious: No
  Sender: FDA-Public Use
  Company Number: None

PATIENT
  Age: 5 Year
  Sex: Female
  Weight: 18.9 kg

DRUGS (1)
  1. EQUATE SPORT SUNSCREEN BROAD SPECTRUM [Suspect]
     Active Substance: AVOBENZONE\HOMOSALATE\OCTISALATE\OCTOCRYLENE\OXYBENZONE
     Dates: start: 20180707, end: 20180707

REACTIONS (3)
  - Blister [None]
  - Drug ineffective [None]
  - Sunburn [None]

NARRATIVE: CASE EVENT DATE: 20180707
